FAERS Safety Report 8525430-8 (Version None)
Quarter: 2012Q3

REPORT INFORMATION
  Report Type: 
  Country: None (occurrence: None)
  Receive Date: 20120720
  Receipt Date: 20120711
  Transmission Date: 20120928
  Serious: Yes (Hospitalization)
  Sender: FDA-Public Use
  Company Number: JP-ASTRAZENECA-2011SE78585

PATIENT
  Age: 23697 Day
  Sex: Male

DRUGS (14)
  1. CARVEDILOL [Concomitant]
     Route: 048
     Dates: start: 20110607
  2. ENALAPRIL MALEATE [Concomitant]
     Route: 048
     Dates: start: 20110805
  3. ENALAPRIL MALEATE [Concomitant]
     Indication: HYPERTENSION
     Route: 048
     Dates: start: 20110603
  4. ISOSORBIDE DINITRATE [Concomitant]
     Indication: ANGINA PECTORIS
     Route: 003
     Dates: start: 20110604
  5. BRILINTA [Suspect]
     Indication: ACUTE CORONARY SYNDROME
     Route: 048
     Dates: start: 20110602
  6. PLACEBO [Suspect]
     Indication: ACUTE CORONARY SYNDROME
     Dosage: DAILY
     Route: 048
     Dates: start: 20110602
  7. ZOLPIDEM [Concomitant]
     Indication: INSOMNIA
     Route: 048
     Dates: start: 20110607
  8. ACTOS [Concomitant]
     Indication: DIABETES MELLITUS
     Route: 048
     Dates: start: 20110608
  9. METFORMIN HCL [Concomitant]
     Indication: DIABETES MELLITUS
     Route: 048
     Dates: start: 20110707
  10. ASPIRIN [Suspect]
     Route: 048
     Dates: start: 20110603
  11. LANSOPRAZOLE [Concomitant]
     Indication: PROPHYLAXIS AGAINST GASTROINTESTINAL ULCER
     Route: 048
     Dates: start: 20110603
  12. AMLODIPINE [Concomitant]
     Indication: HYPERTENSION
     Route: 048
     Dates: start: 20110805
  13. ASPIRIN [Suspect]
     Indication: ACUTE CORONARY SYNDROME
     Route: 048
     Dates: start: 20110602, end: 20110602
  14. CARVEDILOL [Concomitant]
     Indication: ANGINA PECTORIS
     Route: 048
     Dates: start: 20110603, end: 20110706

REACTIONS (1)
  - COLITIS ISCHAEMIC [None]
